FAERS Safety Report 16253332 (Version 1)
Quarter: 2019Q2

REPORT INFORMATION
  Report Type: Report from Study
  Country: None (occurrence: GB)
  Receive Date: 20190429
  Receipt Date: 20190429
  Transmission Date: 20190711
  Serious: Yes (Other)
  Sender: FDA-Public Use
  Company Number: GB-ABBVIE-19K-167-2762698-00

PATIENT
  Age: 22 Year
  Sex: Female

DRUGS (2)
  1. HUMIRA [Suspect]
     Active Substance: ADALIMUMAB
     Indication: PRODUCT USED FOR UNKNOWN INDICATION
     Route: 058
  2. AMGEVITA [Suspect]
     Active Substance: ADALIMUMAB
     Indication: HIDRADENITIS
     Dosage: 40 MILLIGRAM, QWK
     Route: 065
     Dates: start: 20190404

REACTIONS (7)
  - Nausea [Unknown]
  - Feeling abnormal [Unknown]
  - Eye swelling [Recovered/Resolved]
  - Rash pruritic [Unknown]
  - Abdominal distension [Unknown]
  - Malaise [Unknown]
  - Rash papular [Unknown]

NARRATIVE: CASE EVENT DATE: 201904
